FAERS Safety Report 15629865 (Version 2)
Quarter: 2018Q4

REPORT INFORMATION
  Report Type: Spontaneous
  Country: JP (occurrence: JP)
  Receive Date: 20181117
  Receipt Date: 20181204
  Transmission Date: 20190205
  Serious: Yes (Death, Other)
  Sender: FDA-Public Use
  Company Number: PHJP2018JP017480

PATIENT
  Sex: Female

DRUGS (1)
  1. AFINITOR [Suspect]
     Active Substance: EVEROLIMUS
     Indication: BREAST CANCER
     Dosage: 10 MG, QD
     Route: 048
     Dates: start: 201808

REACTIONS (6)
  - Thyroiditis [Unknown]
  - Hypothyroidism [Recovered/Resolved]
  - Pneumonia aspiration [Fatal]
  - Thyroxine free decreased [Not Recovered/Not Resolved]
  - Blood thyroid stimulating hormone increased [Not Recovered/Not Resolved]
  - Tri-iodothyronine free decreased [Not Recovered/Not Resolved]

NARRATIVE: CASE EVENT DATE: 201809
